FAERS Safety Report 8780837 (Version 1)
Quarter: 2012Q4

REPORT INFORMATION
  Report Type: 
  Country: JP (occurrence: JP)
  Receive Date: 20120913
  Receipt Date: 20120913
  Transmission Date: 20130627
  Serious: Yes (Other)
  Sender: FDA-Public Use
  Company Number: JP-ELI_LILLY_AND_COMPANY-JP201209000689

PATIENT
  Sex: Female

DRUGS (2)
  1. FORTEO [Suspect]
     Dosage: UNK
     Route: 058
     Dates: start: 20110203, end: 201109
  2. FORTEO [Suspect]
     Dosage: UNK
     Route: 058
     Dates: start: 201109

REACTIONS (1)
  - Limb operation [Recovered/Resolved]
